FAERS Safety Report 12083794 (Version 1)
Quarter: 2016Q1

REPORT INFORMATION
  Report Type: Spontaneous
  Country: US (occurrence: None)
  Receive Date: 20160216
  Receipt Date: 20160216
  Transmission Date: 20160526
  Serious: Yes (Disabling)
  Sender: FDA-Public Use
  Company Number: None

PATIENT
  Age: 53 Year
  Sex: Female
  Weight: 53.52 kg

DRUGS (8)
  1. E [Concomitant]
  2. VITAMIN D3 [Concomitant]
     Active Substance: CHOLECALCIFEROL
  3. OSTEO BI-FLEX JOINT HEALTH TRIPLE STRENGTH [Concomitant]
  4. MULTIVITAMIN/MINERAL SUPPLEMENT (WALMART BRAND) [Concomitant]
  5. METRONIDAZOLE 60 G SANDOZ [Suspect]
     Active Substance: METRONIDAZOLE
     Indication: ROSACEA
     Dosage: THIN FILM AT BEDTIME APPLIED TO A SURFACE, USUALLY THE SKIN
     Route: 061
     Dates: start: 20151025, end: 20151029
  6. FISH OIL [Concomitant]
     Active Substance: FISH OIL
  7. METRONIDAZOLE GEL USP, 1 % 60 G SANDOZ [Suspect]
     Active Substance: METRONIDAZOLE
     Indication: ROSACEA
     Dosage: THIN FILM AT BEDTIME APPLIED TO A SURFACE, USUALLY THE SKIN
     Route: 061
     Dates: start: 20140801, end: 20151025
  8. B50 [Concomitant]

REACTIONS (3)
  - Neuropathy peripheral [None]
  - Middle insomnia [None]
  - Paraesthesia [None]

NARRATIVE: CASE EVENT DATE: 20150615
